FAERS Safety Report 9928618 (Version 1)
Quarter: 2014Q1

REPORT INFORMATION
  Report Type: Spontaneous
  Country: FR (occurrence: FR)
  Receive Date: 20140227
  Receipt Date: 20140227
  Transmission Date: 20141002
  Serious: Yes (Hospitalization)
  Sender: FDA-Public Use
  Company Number: FR-PFIZER INC-2014053440

PATIENT
  Age: 67 Year
  Sex: Male

DRUGS (14)
  1. TAZOCILLINE [Suspect]
     Dosage: 4 G, 3X/DAY
     Dates: start: 20140111, end: 20140117
  2. AMIKACIN [Suspect]
     Dosage: UNK
     Dates: start: 20140111, end: 20140113
  3. LOVENOX [Concomitant]
     Dosage: 0.4 UNK, DAILY
  4. URSOLVAN-200 [Concomitant]
  5. LEDERFOLIN [Concomitant]
  6. BACTRIM FORTE [Concomitant]
     Dosage: 1 DF, DAILY
  7. INEXIUM /01479302/ [Concomitant]
     Dosage: 20 MG, DAILY
  8. ZELITREX [Concomitant]
     Dosage: 500 MG, DAILY
  9. LEVOTHYROX [Concomitant]
     Dosage: 175 UG, DAILY
  10. NOVONORM [Concomitant]
     Dosage: 2 MG, 3X/DAY
     Dates: end: 20140116
  11. NEURONTIN [Concomitant]
  12. PERMIXON [Concomitant]
  13. AERIUS [Concomitant]
     Dosage: 5 MG, DAILY
  14. DIFFU-K [Concomitant]

REACTIONS (2)
  - Renal tubular disorder [Recovered/Resolved]
  - Hypokalaemia [Recovered/Resolved]
